FAERS Safety Report 5292401-7 (Version None)
Quarter: 2007Q2

REPORT INFORMATION
  Report Type: 
  Country: None (occurrence: None)
  Receive Date: 20070410
  Receipt Date: 20070329
  Transmission Date: 20071010
  Serious: Yes (Other)
  Sender: FDA-Public Use
  Company Number: BR-PFIZER INC-2007024636

PATIENT
  Sex: Female

DRUGS (4)
  1. DETRUSITOL LA [Suspect]
     Indication: URINARY INCONTINENCE
     Route: 048
     Dates: start: 20070216, end: 20070216
  2. ANTIHYPERTENSIVES [Concomitant]
     Route: 065
  3. ALL OTHER THERAPEUTIC PRODUCTS [Concomitant]
     Route: 065
  4. PURAN T4 [Concomitant]
     Route: 048

REACTIONS (6)
  - CHEST PAIN [None]
  - ERYTHEMA [None]
  - EYE DISORDER [None]
  - HEADACHE [None]
  - SINUSITIS [None]
  - THROAT TIGHTNESS [None]
